FAERS Safety Report 24642486 (Version 2)
Quarter: 2024Q4

REPORT INFORMATION
  Report Type: Spontaneous
  Country: US (occurrence: US)
  Receive Date: 20241120
  Receipt Date: 20241125
  Transmission Date: 20250115
  Serious: No
  Sender: BRISTOL-MYERS SQUIBB COMPANY
  Company Number: US-BRISTOL-MYERS SQUIBB COMPANY-2024-179152

PATIENT
  Age: 82 Year
  Sex: Female
  Weight: 59.42 kg

DRUGS (2)
  1. POMALYST [Suspect]
     Active Substance: POMALIDOMIDE
     Indication: Plasma cell myeloma
     Route: 048
     Dates: start: 202410
  2. POMALYST [Suspect]
     Active Substance: POMALIDOMIDE
     Route: 048

REACTIONS (5)
  - Off label use [Unknown]
  - Swelling [Recovering/Resolving]
  - Fluid retention [Recovering/Resolving]
  - Asthenia [Recovering/Resolving]
  - Disturbance in attention [Recovering/Resolving]
